FAERS Safety Report 6222492-8 (Version None)
Quarter: 2009Q2

REPORT INFORMATION
  Report Type: 
  Country: None (occurrence: None)
  Receive Date: 20090608
  Receipt Date: 20090601
  Transmission Date: 20091009
  Serious: Yes (Hospitalization)
  Sender: FDA-Public Use
  Company Number: US-GENENTECH-284146

PATIENT
  Age: 52 Year
  Sex: Female

DRUGS (4)
  1. HERCEPTIN [Suspect]
     Indication: BREAST CANCER
     Dosage: UNK
  2. CARBOPLATIN [Suspect]
     Indication: BREAST CANCER
     Dosage: UNK
  3. TAXOL [Concomitant]
     Indication: BREAST CANCER
     Dosage: UNK
  4. RADIATION THERAPY [Concomitant]
     Indication: BREAST CANCER
     Dosage: UNK

REACTIONS (2)
  - CARDIOTOXICITY [None]
  - DYSPNOEA [None]
